FAERS Safety Report 6575457-0 (Version None)
Quarter: 2010Q1

REPORT INFORMATION
  Report Type: 
  Country: None (occurrence: None)
  Receive Date: 20100209
  Receipt Date: 20100202
  Transmission Date: 20100710
  Serious: Yes (Death)
  Sender: FDA-Public Use
  Company Number: US-GILEAD-2010-0026859

PATIENT
  Sex: Male
  Weight: 64.922 kg

DRUGS (7)
  1. LETAIRIS [Suspect]
     Indication: PULMONARY ARTERIAL HYPERTENSION
     Route: 048
     Dates: start: 20070904
  2. TORSEMIDE [Concomitant]
  3. ZAROXOLYN [Concomitant]
  4. SPIRONOLACTONE [Concomitant]
  5. KLOR-CON [Concomitant]
  6. AMBIEN [Concomitant]
  7. ASPIRIN [Concomitant]

REACTIONS (1)
  - DEATH [None]
